FAERS Safety Report 9420626 (Version 6)
Quarter: 2015Q2

REPORT INFORMATION
  Report Type: Spontaneous
  Country: JP (occurrence: None)
  Receive Date: 20130723
  Receipt Date: 20150424
  Transmission Date: 20150821
  Serious: Yes (Other)
  Sender: FDA-Public Use
  Company Number: 2009JP000074

PATIENT
  Age: 44 Year
  Sex: Female
  Weight: 44 kg

DRUGS (16)
  1. PREDONINE [Suspect]
     Active Substance: PREDNISOLONE\PREDNISOLONE ACETATE\PREDNISOLONE SODIUM SUCCINATE
     Indication: LUPUS NEPHRITIS
     Route: 048
     Dates: end: 20070618
  2. SELOKEN (METOPROLOL TARTRATE) [Concomitant]
     Active Substance: METOPROLOL TARTRATE
  3. TANATRIL (IMIDAPRIL HYDROCHLORIDE) [Concomitant]
     Active Substance: IMIDAPRIL HYDROCHLORIDE
  4. ADALAT CR (NIFEDIPINE) [Concomitant]
  5. DIOVAN [Concomitant]
     Active Substance: VALSARTAN
  6. HYLAEIN (HYALURONATE SODIUM) [Concomitant]
  7. PROGRAF [Suspect]
     Active Substance: TACROLIMUS\TACROLIMUS ANHYDROUS
     Indication: LUPUS NEPHRITIS
     Route: 048
     Dates: start: 20070213, end: 20070312
  8. PERSANTIN-L (DYPRIDAMOLE) ? [Concomitant]
  9. FERROMIA  (FERROUS SODIUM CITRATE) [Concomitant]
  10. LIPITOR [Concomitant]
     Active Substance: ATORVASTATIN CALCIUM
  11. ACINON (NIZATIDINE) [Concomitant]
  12. LASIX [Concomitant]
     Active Substance: FUROSEMIDE
  13. BLOPRESS (CANDESARTAN CILEXETIL) [Concomitant]
     Active Substance: CANDESARTAN CILEXETIL
  14. LYRICA [Concomitant]
     Active Substance: PREGABALIN
  15. OLMETEC (OLMESARTAN MEDOXOMIL) [Concomitant]
     Active Substance: OLMESARTAN MEDOXOMIL
  16. FOSAMAC (ALENDRONATE SODIUM) [Concomitant]

REACTIONS (10)
  - Hypertension [None]
  - Blood albumin decreased [None]
  - White blood cell count increased [None]
  - Blood creatinine increased [None]
  - Arthralgia [None]
  - Blood calcium decreased [None]
  - Gait disturbance [None]
  - Osteonecrosis [None]
  - Protein total decreased [None]
  - Sciatica [None]

NARRATIVE: CASE EVENT DATE: 20070313
